FAERS Safety Report 9351370 (Version 1)
Quarter: 2013Q2

REPORT INFORMATION
  Report Type: Spontaneous
  Country: DE (occurrence: DE)
  Receive Date: 20130617
  Receipt Date: 20130617
  Transmission Date: 20140414
  Serious: Yes (Congenital Anomaly)
  Sender: FDA-Public Use
  Company Number: DE-LUNDBECK-DKLU1091777

PATIENT
  Age: 0 Day
  Sex: Male

DRUGS (4)
  1. ONFI [Suspect]
     Indication: EPILEPSY
     Route: 064
     Dates: start: 2007, end: 2007
  2. ONFI [Suspect]
     Route: 064
     Dates: start: 2007, end: 2007
  3. LAMOTRIGINE [Suspect]
     Indication: EPILEPSY
     Route: 064
     Dates: start: 20070403, end: 20080102
  4. FOLIC ACID [Concomitant]
     Indication: PRODUCT USED FOR UNKNOWN INDICATION
     Dates: start: 20070403, end: 20080102

REACTIONS (2)
  - Haemangioma congenital [Unknown]
  - Ventricular septal defect [Unknown]
